FAERS Safety Report 13752292 (Version 3)
Quarter: 2023Q2

REPORT INFORMATION
  Report Type: Spontaneous
  Country: US (occurrence: US)
  Receive Date: 20170713
  Receipt Date: 20230518
  Transmission Date: 20230722
  Serious: Yes (Other)
  Sender: FDA-Public Use
  Company Number: US-JAZZ-2017-US-006387

PATIENT
  Age: 0 Year
  Sex: Male

DRUGS (2)
  1. XYREM [Suspect]
     Active Substance: SODIUM OXYBATE
     Indication: Maternal exposure during pregnancy
     Route: 064
  2. ARMODAFINIL [Suspect]
     Active Substance: ARMODAFINIL
     Indication: Maternal exposure during pregnancy
     Route: 064

REACTIONS (3)
  - Talipes [Unknown]
  - Premature baby [Unknown]
  - Foetal exposure during pregnancy [Unknown]

NARRATIVE: CASE EVENT DATE: 20170411
